FAERS Safety Report 9359146 (Version 1)
Quarter: 2013Q2

REPORT INFORMATION
  Report Type: Spontaneous
  Country: US (occurrence: US)
  Receive Date: 20130620
  Receipt Date: 20130620
  Transmission Date: 20140414
  Serious: No
  Sender: FDA-Public Use
  Company Number: US-TEVA-403962USA

PATIENT
  Sex: Male

DRUGS (1)
  1. QVAR [Suspect]
     Dosage: UNKNOWN THEN 1 PUFF AT NIGHT

REACTIONS (4)
  - Visual impairment [Not Recovered/Not Resolved]
  - Glare [Not Recovered/Not Resolved]
  - Visual brightness [Not Recovered/Not Resolved]
  - Tremor [Not Recovered/Not Resolved]
